FAERS Safety Report 9556369 (Version 2)
Quarter: 2013Q4

REPORT INFORMATION
  Report Type: Spontaneous
  Country: US (occurrence: US)
  Receive Date: 20130926
  Receipt Date: 20131217
  Transmission Date: 20140711
  Serious: Yes (Other)
  Sender: FDA-Public Use
  Company Number: US-BAYER-2013-116335

PATIENT
  Age: 21 Year
  Sex: Female
  Weight: 81.63 kg

DRUGS (4)
  1. MIRENA [Suspect]
     Indication: CONTRACEPTION
     Dosage: 20 MCG/24HR, CONT
     Route: 015
     Dates: start: 20121101, end: 20121129
  2. FLOVENT HFA [Concomitant]
     Dosage: 110 MCG/ACTUATION, 1 PUFF 2 TIMES EVERY DAY
  3. ALBUTEROL [Concomitant]
     Dosage: 90 MCG, INHALE 2 EVERY 4-6 HOURS AS NEEDED
  4. PRENATAL VITAMINS [Concomitant]
     Dosage: 1 TABLET EVERY DAY
     Route: 048

REACTIONS (9)
  - Uterine perforation [None]
  - Device dislocation [None]
  - Emotional distress [None]
  - Pain [None]
  - Injury [None]
  - General physical health deterioration [None]
  - Anxiety [None]
  - Anhedonia [None]
  - Genital haemorrhage [None]
